FAERS Safety Report 6715179-6 (Version None)
Quarter: 2010Q2

REPORT INFORMATION
  Report Type: 
  Country: None (occurrence: None)
  Receive Date: 20100506
  Receipt Date: 20100506
  Transmission Date: 20101027
  Serious: No
  Sender: FDA-Public Use
  Company Number: None

PATIENT
  Age: 58 Year
  Sex: Female
  Weight: 88.4514 kg

DRUGS (1)
  1. ETHYL CHLORIDE (CHEMICAL) [Suspect]
     Indication: TREMOR
     Dosage: OVER SPRAY ONE OVER-SCALP ; SCALP, HAIR, FACE KILL SPRAY HAIR
     Dates: start: 20090202

REACTIONS (2)
  - BURNS THIRD DEGREE [None]
  - PRURITUS [None]
